FAERS Safety Report 5616217-4 (Version None)
Quarter: 2008Q1

REPORT INFORMATION
  Report Type: 
  Country: None (occurrence: None)
  Receive Date: 20080204
  Receipt Date: 20080117
  Transmission Date: 20080703
  Serious: No
  Sender: FDA-Public Use
  Company Number: 8029439

PATIENT
  Age: 11 Year
  Sex: Male
  Weight: 43.7 kg

DRUGS (3)
  1. EQUASYM [Suspect]
     Dosage: 30 MG
     Dates: start: 20070424
  2. METHYLPHENIDAT [Concomitant]
  3. CONCERTA [Concomitant]

REACTIONS (1)
  - TIC [None]
